FAERS Safety Report 14382112 (Version 3)
Quarter: 2018Q1

REPORT INFORMATION
  Report Type: Report from Study
  Country: US (occurrence: US)
  Receive Date: 20180112
  Receipt Date: 20180201
  Transmission Date: 20180509
  Serious: Yes (Other)
  Sender: FDA-Public Use
  Company Number: US-MALLINCKRODT-T201705538

PATIENT
  Age: 66 Year
  Sex: Male

DRUGS (3)
  1. REPOSITORY CORTICOTROPIN INJECTION [Suspect]
     Active Substance: CORTICOTROPIN
     Indication: PROTEINURIA
     Dosage: 80 UNITS / 1 ML, 2 TIMES PER WEEK (TUESDAY AND FRIDAY)
     Route: 058
     Dates: start: 20171219, end: 20180116
  2. REPOSITORY CORTICOTROPIN INJECTION [Suspect]
     Active Substance: CORTICOTROPIN
     Indication: FIBRILLARY GLOMERULONEPHRITIS
  3. REPOSITORY CORTICOTROPIN INJECTION [Suspect]
     Active Substance: CORTICOTROPIN
     Indication: NEPHROTIC SYNDROME

REACTIONS (9)
  - Blood creatinine increased [Unknown]
  - Muscle spasms [Unknown]
  - Blood pressure fluctuation [Not Recovered/Not Resolved]
  - Headache [Unknown]
  - Underdose [Unknown]
  - Tic [Unknown]
  - Heart rate increased [Not Recovered/Not Resolved]
  - Vertigo [Recovering/Resolving]
  - Weight increased [Unknown]

NARRATIVE: CASE EVENT DATE: 20171219
